FAERS Safety Report 24806502 (Version 1)
Quarter: 2025Q1

REPORT INFORMATION
  Report Type: Spontaneous
  Country: ES (occurrence: ES)
  Receive Date: 20250103
  Receipt Date: 20250103
  Transmission Date: 20250409
  Serious: Yes (Other)
  Sender: ABBVIE
  Company Number: None

PATIENT
  Age: 83 Year
  Sex: Female

DRUGS (6)
  1. RINVOQ [Suspect]
     Active Substance: UPADACITINIB
     Indication: Rheumatoid arthritis
     Dosage: RINVOQ 15 MG EXTENDED-RELEASE TABLETS, 28 TABLETS
     Route: 048
     Dates: start: 20241203, end: 20241210
  2. LEVOTHYROXINE SODIUM [Concomitant]
     Active Substance: LEVOTHYROXINE SODIUM
     Indication: Product used for unknown indication
     Dosage: 100 MICROGRAMS TABLETS, 100 TABLETS
     Route: 048
     Dates: start: 20180116
  3. FLUTICASONE PROPIONATE\SALMETEROL XINAFOATE [Concomitant]
     Active Substance: FLUTICASONE PROPIONATE\SALMETEROL XINAFOATE
     Indication: Product used for unknown indication
     Dosage: 25 MICROGRAMS/50 MICROGRAMS/ INHALATION, SUSPENSION FOR INHALATION IN A PRESSURE PACK, 1 120 DOSE...
     Dates: start: 20200114
  4. CALCIFEDIOL [Concomitant]
     Active Substance: CALCIFEDIOL
     Indication: Product used for unknown indication
     Dosage: 0.266 MG SOFT CAPSULES, 10 CAPSULES (PVC/PVDC-ALUMINIUM BLISTER)
     Route: 001
     Dates: start: 20241203
  5. LORAZEPAM [Concomitant]
     Active Substance: LORAZEPAM
     Indication: Product used for unknown indication
     Dosage: 1 MG TABLETS, 50 TABLETS
     Route: 048
     Dates: start: 20151019
  6. TRAMADOL HYDROCHLORIDE [Concomitant]
     Active Substance: TRAMADOL HYDROCHLORIDE
     Indication: Product used for unknown indication
     Dosage: 50 MG HARD CAPSULES, 60 CAPSULES
     Route: 048
     Dates: start: 20240905

REACTIONS (2)
  - Confusional state [Recovered/Resolved]
  - Disorientation [Recovered/Resolved]

NARRATIVE: CASE EVENT DATE: 20241204
